FAERS Safety Report 10141316 (Version 1)
Quarter: 2014Q2

REPORT INFORMATION
  Report Type: Spontaneous
  Country: DK (occurrence: FR)
  Receive Date: 20140429
  Receipt Date: 20140429
  Transmission Date: 20141212
  Serious: Yes (Hospitalization)
  Sender: FDA-Public Use
  Company Number: FR-FRI-1000066846

PATIENT
  Age: 54 Year
  Sex: Female

DRUGS (7)
  1. CITALOPRAM [Suspect]
     Indication: ANXIETY DISORDER
     Dates: start: 20131202, end: 20140103
  2. HALAVEN [Suspect]
     Indication: BREAST CANCER
     Dates: start: 20131202, end: 20131209
  3. LASILIX [Concomitant]
     Route: 048
     Dates: end: 201312
  4. LASILIX [Concomitant]
     Dosage: 40 MG
     Route: 048
     Dates: start: 201312
  5. BENZODIAZEPINE RELATED DRUGS [Concomitant]
  6. AVASTIN [Concomitant]
     Dates: end: 201309
  7. FEMARA [Concomitant]
     Dates: start: 201302, end: 201309

REACTIONS (3)
  - Cardiac failure acute [Recovered/Resolved]
  - Ejection fraction decreased [Recovered/Resolved]
  - Neutropenia [Recovered/Resolved]
